FAERS Safety Report 8950046 (Version 1)
Quarter: 2012Q4

REPORT INFORMATION
  Report Type: 
  Country: US (occurrence: US)
  Receive Date: 20121205
  Receipt Date: 20121205
  Transmission Date: 20130627
  Serious: No
  Sender: FDA-Public Use
  Company Number: US-AMGEN-USASP2012071576

PATIENT
  Age: 38 Year
  Sex: Female

DRUGS (2)
  1. ENBREL [Suspect]
     Indication: PSORIATIC ARTHROPATHY
     Dosage: 50 mg, qwk
     Dates: start: 20120715
  2. METHOTREXATE [Concomitant]
     Dosage: 6 tablets, 2.5 mg, qwk
     Dates: start: 201205

REACTIONS (10)
  - Urinary tract infection [Not Recovered/Not Resolved]
  - Spinal pain [Not Recovered/Not Resolved]
  - Neck pain [Not Recovered/Not Resolved]
  - Mobility decreased [Not Recovered/Not Resolved]
  - Vulvovaginal pruritus [Not Recovered/Not Resolved]
  - Pruritus [Unknown]
  - Skin haemorrhage [Not Recovered/Not Resolved]
  - Gait disturbance [Not Recovered/Not Resolved]
  - Ligament rupture [Not Recovered/Not Resolved]
  - Fungal infection [Not Recovered/Not Resolved]
